FAERS Safety Report 9397912 (Version 1)
Quarter: 2013Q3

REPORT INFORMATION
  Report Type: Spontaneous
  Country: GB (occurrence: None)
  Receive Date: 20130709
  Receipt Date: 20130709
  Transmission Date: 20140515
  Serious: Yes (Death, Life-Threatening, Hospitalization)
  Sender: FDA-Public Use
  Company Number: AUR-APL-2013-05567

PATIENT
  Age: 58 Year
  Sex: Male

DRUGS (2)
  1. BISOPROLOL [Suspect]
     Indication: ARRHYTHMIA SUPRAVENTRICULAR
     Route: 048
  2. VERAPAMIL (VERAPAMIL) [Suspect]
     Indication: ARRHYTHMIA SUPRAVENTRICULAR

REACTIONS (4)
  - Dyspnoea [None]
  - Fatigue [None]
  - Potentiating drug interaction [None]
  - Cardiac failure [None]
